FAERS Safety Report 9662001 (Version 1)
Quarter: 2013Q4

REPORT INFORMATION
  Report Type: Spontaneous
  Country: CA (occurrence: None)
  Receive Date: 20131030
  Receipt Date: 20131030
  Transmission Date: 20140711
  Serious: Yes (Hospitalization)
  Sender: FDA-Public Use
  Company Number: ACO_38853_2013

PATIENT
  Age: 64 Year
  Sex: Male

DRUGS (1)
  1. FAMPYRA [Suspect]
     Indication: GAIT DISTURBANCE
     Route: 048
     Dates: start: 20130618

REACTIONS (2)
  - Multiple sclerosis relapse [None]
  - Infection [None]
